FAERS Safety Report 23871111 (Version 1)
Quarter: 2024Q2

REPORT INFORMATION
  Report Type: Spontaneous
  Country: US (occurrence: US)
  Receive Date: 20240518
  Receipt Date: 20240518
  Transmission Date: 20240716
  Serious: No
  Sender: FDA-Public Use
  Company Number: US-TARSUS PHARMACEUTICALS-TSP-US-2024-000124

PATIENT
  Age: 70 Year
  Sex: Male

DRUGS (1)
  1. XDEMVY [Suspect]
     Active Substance: LOTILANER
     Indication: Arthropod infestation
     Dosage: 1 DROP, BID (IN BOTH EYES FOR ABOUT 4 WEEKS)
     Route: 047
     Dates: start: 20240305

REACTIONS (2)
  - Therapy interrupted [Unknown]
  - Product use issue [Unknown]
